FAERS Safety Report 5389458-1 (Version None)
Quarter: 2007Q3

REPORT INFORMATION
  Report Type: 
  Country: None (occurrence: None)
  Receive Date: 20070717
  Receipt Date: 20070710
  Transmission Date: 20080115
  Serious: Yes (Life-Threatening, Hospitalization, Other)
  Sender: FDA-Public Use
  Company Number: GB-ELI_LILLY_AND_COMPANY-GB200707002830

PATIENT
  Age: 66 Year
  Sex: Male

DRUGS (8)
  1. GEMCITABINE HCL [Suspect]
     Dates: start: 20070608
  2. CO-DANTHRUSATE [Concomitant]
  3. DEXAMETHASONE 0.5MG TAB [Concomitant]
     Dosage: 2 MG, DAILY (1/D)
     Route: 048
  4. IBUPROFEN [Concomitant]
     Dosage: 400 MG, 2/D
     Route: 048
  5. MORPHINE SULFATE [Concomitant]
     Dosage: 100 MG, 2/D
  6. OMEPRAZOLE [Concomitant]
     Dosage: 20 MG, DAILY (1/D)
  7. ORAMORPH SR [Concomitant]
     Dosage: 10 MG, DAILY (1/D)
     Route: 048
  8. ACETAMINOPHEN [Concomitant]
     Dosage: 1 G, 4/D
     Route: 048

REACTIONS (5)
  - CHILLS [None]
  - DYSPNOEA [None]
  - LOWER RESPIRATORY TRACT INFECTION [None]
  - PNEUMONITIS [None]
  - TACHYPNOEA [None]
